FAERS Safety Report 5342646-2 (Version None)
Quarter: 2007Q2

REPORT INFORMATION
  Report Type: 
  Country: None (occurrence: None)
  Receive Date: 20070601
  Receipt Date: 20070522
  Transmission Date: 20071010
  Serious: Yes (Other)
  Sender: FDA-Public Use
  Company Number: US-PFIZER INC-2007034111

PATIENT
  Sex: Female
  Weight: 59.545 kg

DRUGS (8)
  1. CHANTIX [Suspect]
     Indication: SMOKING CESSATION THERAPY
     Dates: start: 20070414, end: 20070401
  2. ALPRAZOLAM [Suspect]
     Indication: ANXIETY
  3. ZANTAC [Concomitant]
  4. ATENOLOL [Concomitant]
  5. VITAMIN B [Concomitant]
  6. PLAVIX [Concomitant]
  7. DILTIAZEM [Concomitant]
  8. PROTONIX [Concomitant]

REACTIONS (12)
  - ABDOMINAL DISCOMFORT [None]
  - ADVERSE DRUG REACTION [None]
  - ANXIETY [None]
  - BLOOD PRESSURE FLUCTUATION [None]
  - CYANOSIS [None]
  - DIZZINESS [None]
  - DYSPNOEA [None]
  - INSOMNIA [None]
  - NERVOUSNESS [None]
  - PANIC ATTACK [None]
  - SYNCOPE [None]
  - TEARFULNESS [None]
